FAERS Safety Report 20068658 (Version 34)
Quarter: 2025Q4

REPORT INFORMATION
  Report Type: Report from Study
  Country: US (occurrence: US)
  Receive Date: 20211115
  Receipt Date: 20251129
  Transmission Date: 20260117
  Serious: Yes (Hospitalization, Other)
  Sender: TAKEDA
  Company Number: US-TAKEDA-2021TUS051052

PATIENT
  Age: 82 Year
  Sex: Female
  Weight: 59 kg

DRUGS (22)
  1. HUMAN IMMUNOGLOBULIN G [Suspect]
     Active Substance: HUMAN IMMUNOGLOBULIN G
     Indication: Immune system disorder
     Dosage: 16 GRAM, Q2WEEKS
  2. HUMAN IMMUNOGLOBULIN G [Suspect]
     Active Substance: HUMAN IMMUNOGLOBULIN G
     Indication: Hypergammaglobulinaemia
  3. QUETIAPINE FUMARATE [Concomitant]
     Active Substance: QUETIAPINE FUMARATE
     Dosage: UNK
  4. SPIRONOLACTONE [Concomitant]
     Active Substance: SPIRONOLACTONE
     Dosage: UNK
  5. ACETAMINOPHEN [Concomitant]
     Active Substance: ACETAMINOPHEN
     Dosage: UNK
  6. DIPHENHYDRAMINE [Concomitant]
     Active Substance: DIPHENHYDRAMINE
     Dosage: UNK
  7. EPINEPHRINE [Concomitant]
     Active Substance: EPINEPHRINE
     Dosage: UNK
  8. Lmx [Concomitant]
     Dosage: UNK
  9. SINGULAIR [Concomitant]
     Active Substance: MONTELUKAST SODIUM
     Dosage: UNK
  10. PROTONIX [Concomitant]
     Active Substance: PANTOPRAZOLE SODIUM
     Dosage: UNK
  11. LIPITOR [Concomitant]
     Active Substance: ATORVASTATIN CALCIUM
     Dosage: UNK
  12. DOXAZOSIN MESYLATE [Concomitant]
     Active Substance: DOXAZOSIN MESYLATE
     Dosage: UNK
  13. ASPIRIN [Concomitant]
     Active Substance: ASPIRIN
     Dosage: UNK
  14. CITALOPRAM HYDROBROMIDE [Concomitant]
     Active Substance: CITALOPRAM HYDROBROMIDE
     Dosage: UNK
  15. LORATADINE [Concomitant]
     Active Substance: LORATADINE
     Dosage: UNK
  16. VALSARTAN [Concomitant]
     Active Substance: VALSARTAN
     Dosage: UNK
  17. MUCINEX [Concomitant]
     Active Substance: GUAIFENESIN
     Dosage: UNK
  18. ISOSORBIDE MONONITRATE [Concomitant]
     Active Substance: ISOSORBIDE MONONITRATE
     Dosage: UNK
  19. MAGNESIUM [Concomitant]
     Active Substance: MAGNESIUM
     Dosage: UNK
  20. NADOLOL [Concomitant]
     Active Substance: NADOLOL
     Dosage: UNK
  21. ALPRAZOLAM [Concomitant]
     Active Substance: ALPRAZOLAM
     Dosage: UNK
  22. DIPHENHYDRAMINE HYDROCHLORIDE [Concomitant]
     Active Substance: DIPHENHYDRAMINE HYDROCHLORIDE
     Dosage: UNK

REACTIONS (53)
  - Hypertensive crisis [Unknown]
  - Loss of consciousness [Unknown]
  - Palpitations [Unknown]
  - Hypotension [Unknown]
  - Diarrhoea [Recovered/Resolved]
  - Cerebrovascular accident [Unknown]
  - Chills [Unknown]
  - Fatigue [Recovered/Resolved]
  - Urinary tract infection [Unknown]
  - Product dose omission issue [Unknown]
  - Drug ineffective [Unknown]
  - Nasopharyngitis [Unknown]
  - Limb mass [Unknown]
  - Multiple allergies [Unknown]
  - Gastrointestinal infection [Unknown]
  - Irritable bowel syndrome [Unknown]
  - Blood sodium decreased [Unknown]
  - Weight decreased [Unknown]
  - Haemorrhoids [Unknown]
  - Infusion site irritation [Unknown]
  - Fall [Unknown]
  - Upper limb fracture [Unknown]
  - Seasonal allergy [Unknown]
  - Viral infection [Unknown]
  - Blood pressure decreased [Unknown]
  - Skin discolouration [Not Recovered/Not Resolved]
  - Mass [Not Recovered/Not Resolved]
  - Blood magnesium decreased [Unknown]
  - Illness [Unknown]
  - Sinusitis [Unknown]
  - Hypoaesthesia [Unknown]
  - Influenza [Unknown]
  - Infusion site haematoma [Recovering/Resolving]
  - Abdominal discomfort [Unknown]
  - Body temperature increased [Unknown]
  - Rhinorrhoea [Unknown]
  - Infusion site extravasation [Unknown]
  - Swelling [Unknown]
  - Infusion site oedema [Recovering/Resolving]
  - Infusion site bruising [Recovering/Resolving]
  - Infusion site reaction [Unknown]
  - Lethargy [Unknown]
  - Asthenia [Unknown]
  - Blood pressure increased [Unknown]
  - Influenza like illness [Unknown]
  - Cough [Unknown]
  - Malaise [Not Recovered/Not Resolved]
  - Infusion site pruritus [Unknown]
  - Hypertension [Unknown]
  - Chest discomfort [Unknown]
  - Infusion site pain [Unknown]
  - Pruritus [Unknown]
  - Headache [Not Recovered/Not Resolved]

NARRATIVE: CASE EVENT DATE: 20220701
